FAERS Safety Report 8923787 (Version 3)
Quarter: 2013Q3

REPORT INFORMATION
  Report Type: Spontaneous
  Country: IL (occurrence: IL)
  Receive Date: 20121126
  Receipt Date: 20130717
  Transmission Date: 20140515
  Serious: Yes (Hospitalization)
  Sender: FDA-Public Use
  Company Number: IL-SANOFI-AVENTIS-2012SA085428

PATIENT
  Age: 39 Year
  Sex: Female

DRUGS (3)
  1. CLEXANE [Suspect]
     Indication: PREGNANCY
     Route: 065
     Dates: start: 20121029
  2. CLEXANE [Suspect]
     Indication: PREGNANCY
     Route: 065
     Dates: start: 20120829, end: 20120912
  3. FOLIC ACID [Concomitant]
     Indication: PREGNANCY
     Dosage: AT CONCEPTION

REACTIONS (4)
  - Headache [Unknown]
  - Epistaxis [Unknown]
  - Purpura [Unknown]
  - Exposure during pregnancy [Unknown]
